FAERS Safety Report 11677815 (Version 2)
Quarter: 2015Q4

REPORT INFORMATION
  Report Type: Spontaneous
  Country: TR (occurrence: TR)
  Receive Date: 20151028
  Receipt Date: 20151105
  Transmission Date: 20160304
  Serious: Yes (Other)
  Sender: FDA-Public Use
  Company Number: TR-ACTAVIS-2015-21290

PATIENT
  Age: 14 Year
  Sex: Female
  Weight: 47 kg

DRUGS (3)
  1. PARACETAMOL (ACETAMINOPHEN)/CODEINE PHOSPHATE (UNKNOWN) [Suspect]
     Active Substance: ACETAMINOPHEN\CODEINE PHOSPHATE
     Indication: INFLUENZA LIKE ILLNESS
     Dosage: 1 DF, TWO OR THREE TIMES PER DAY
     Route: 065
  2. PARACETAMOL (ACETAMINOPHEN)/CODEINE PHOSPHATE (UNKNOWN) [Suspect]
     Active Substance: ACETAMINOPHEN\CODEINE PHOSPHATE
     Dosage: UNK, AS NEEDED
     Route: 065
  3. IRON COMPLEX                       /00023501/ [Concomitant]
     Indication: IRON DEFICIENCY ANAEMIA
     Dosage: UNK
     Route: 065

REACTIONS (1)
  - Tubulointerstitial nephritis [Recovered/Resolved]
